FAERS Safety Report 10517148 (Version 2)
Quarter: 2014Q4

REPORT INFORMATION
  Report Type: Spontaneous
  Country: US (occurrence: US)
  Receive Date: 20141014
  Receipt Date: 20141119
  Transmission Date: 20150528
  Serious: No
  Sender: FDA-Public Use
  Company Number: US-PFIZER INC-2014277557

PATIENT
  Age: 75 Year
  Sex: Male
  Weight: 61 kg

DRUGS (10)
  1. MELOXICAM. [Concomitant]
     Active Substance: MELOXICAM
  2. OXYCODONE [Concomitant]
     Active Substance: OXYCODONE
     Dosage: UNK (10-15 MG PER DAY)
  3. DIOVAN [Concomitant]
     Active Substance: VALSARTAN
     Dosage: UNK
     Dates: start: 2008
  4. MORPHINE [Concomitant]
     Active Substance: MORPHINE
     Dosage: UNK
     Dates: start: 20141001, end: 20141004
  5. CELEBREX [Suspect]
     Active Substance: CELECOXIB
     Indication: PROCEDURAL PAIN
     Dosage: 200 MG, 2X/DAY
     Dates: start: 20141004
  6. HYDROCODONE [Concomitant]
     Active Substance: HYDROCODONE
     Dosage: 10 MG, DAILY (AT NIGHT)
  7. PRILOSEC [Concomitant]
     Active Substance: OMEPRAZOLE MAGNESIUM
     Dosage: UNK
     Dates: start: 2012
  8. FLOMAX [Concomitant]
     Active Substance: TAMSULOSIN HYDROCHLORIDE
     Dosage: UNK
     Dates: start: 2012
  9. VICODIN [Concomitant]
     Active Substance: ACETAMINOPHEN\HYDROCODONE BITARTRATE
  10. LIPITOR [Concomitant]
     Active Substance: ATORVASTATIN CALCIUM
     Dosage: UNK
     Dates: start: 2010

REACTIONS (2)
  - Insomnia [Recovered/Resolved]
  - Nervousness [Recovered/Resolved]

NARRATIVE: CASE EVENT DATE: 20141004
